FAERS Safety Report 17412173 (Version 1)
Quarter: 2020Q1

REPORT INFORMATION
  Report Type: Spontaneous
  Country: US (occurrence: US)
  Receive Date: 20200213
  Receipt Date: 20200213
  Transmission Date: 20200409
  Serious: Yes (Hospitalization, Other)
  Sender: FDA-Public Use
  Company Number: US-QUAGEN PHARMA LLC-2020QUALIT00023

PATIENT
  Age: 82 Year
  Sex: Female

DRUGS (3)
  1. PROPYLTHIOURACIL TABLETS USP [Suspect]
     Active Substance: PROPYLTHIOURACIL
  2. METHYLPREDNISOLONE. [Interacting]
     Active Substance: METHYLPREDNISOLONE
  3. CYCLOPHOSPHAMIDE. [Interacting]
     Active Substance: CYCLOPHOSPHAMIDE

REACTIONS (5)
  - Granulomatosis with polyangiitis [Unknown]
  - Anaemia [Unknown]
  - Renal impairment [Unknown]
  - Vasculitis [Unknown]
  - Respiratory failure [Unknown]
